FAERS Safety Report 7212206-7 (Version None)
Quarter: 2010Q4

REPORT INFORMATION
  Report Type: 
  Country: None (occurrence: None)
  Receive Date: 20101229
  Receipt Date: 20101209
  Transmission Date: 20110411
  Serious: Yes (Disabling)
  Sender: FDA-Public Use
  Company Number: VISP-NO-1012S-0548

PATIENT
  Age: 67 Year
  Sex: Female

DRUGS (1)
  1. VISIPAQUE [Suspect]
     Indication: CORONARY ARTERY DISEASE
     Dosage: 131 ML, SINGLE DOSE, I.A.
     Route: 013
     Dates: start: 20040917, end: 20040917

REACTIONS (4)
  - HAEMODIALYSIS [None]
  - IDIOPATHIC THROMBOCYTOPENIC PURPURA [None]
  - RENAL FAILURE ACUTE [None]
  - RENAL TRANSPLANT [None]
